FAERS Safety Report 5142268-2 (Version None)
Quarter: 2006Q4

REPORT INFORMATION
  Report Type: 
  Country: None (occurrence: None)
  Receive Date: 20061102
  Receipt Date: 20060831
  Transmission Date: 20070319
  Serious: Yes (Other)
  Sender: FDA-Public Use
  Company Number: US-ROCHE-461930

PATIENT
  Age: 42 Year
  Sex: Female

DRUGS (1)
  1. ACCUTANE [Suspect]
     Route: 048
     Dates: start: 20060605, end: 20060830

REACTIONS (6)
  - ADVERSE EVENT [None]
  - ALOPECIA [None]
  - JOINT SWELLING [None]
  - LIBIDO DECREASED [None]
  - OEDEMA PERIPHERAL [None]
  - RASH [None]
